FAERS Safety Report 4452487-6 (Version None)
Quarter: 2004Q3

REPORT INFORMATION
  Report Type: 
  Country: None (occurrence: None)
  Receive Date: 20040916
  Receipt Date: 20040902
  Transmission Date: 20050211
  Serious: Yes (Death)
  Sender: FDA-Public Use
  Company Number: CN-JNJFOC-20040901390

PATIENT
  Sex: Female

DRUGS (4)
  1. LOPERAMIDE [Suspect]
     Indication: DIARRHOEA
     Dosage: 4 MG, 1 IN 1 DAY, ORAL
     Route: 048
     Dates: start: 20040226, end: 20040226
  2. AGERATUM (PLANT ALKALOIDS AND OTHER NATURAL PRODUCTS) [Concomitant]
  3. BERBERINE (BERBERINE) [Concomitant]
  4. WU JI SAN (HERBAL PREPARATION) [Concomitant]

REACTIONS (2)
  - JOINT STIFFNESS [None]
  - TRISMUS [None]
